FAERS Safety Report 8423384-6 (Version None)
Quarter: 2012Q2

REPORT INFORMATION
  Report Type: 
  Country: None (occurrence: None)
  Receive Date: 20120608
  Receipt Date: 20120525
  Transmission Date: 20120825
  Serious: Yes (Other)
  Sender: FDA-Public Use
  Company Number: CHPA2012US011467

PATIENT
  Sex: Male

DRUGS (3)
  1. PHENYLEPHRINE HCL [Suspect]
     Indication: NASAL CONGESTION
     Dosage: 4 SQUIRTS, QD
     Route: 045
     Dates: end: 20120101
  2. AFRIN                              /00070002/ [Concomitant]
     Dosage: UNK
  3. PHENYLEPHRINE HYDROCHLORIDE [Suspect]
     Dosage: 4 SQUIRTS, QD
     Route: 045
     Dates: end: 20120101

REACTIONS (2)
  - GRAND MAL CONVULSION [None]
  - SOMNAMBULISM [None]
